FAERS Safety Report 6037291-X (Version None)
Quarter: 2009Q1

REPORT INFORMATION
  Report Type: 
  Country: None (occurrence: None)
  Receive Date: 20090114
  Receipt Date: 20090112
  Transmission Date: 20090719
  Serious: Yes (Other)
  Sender: FDA-Public Use
  Company Number: D0060123A

PATIENT
  Age: 43 Year
  Sex: Female

DRUGS (5)
  1. LAMICTAL [Suspect]
     Indication: EPILEPSY
     Route: 048
  2. BARBITURATE [Suspect]
     Route: 065
  3. VALIUM [Suspect]
     Dosage: 20MG PER DAY
     Route: 042
  4. VALPROATE SODIUM [Suspect]
     Indication: EPILEPSY
     Route: 048
  5. NATRIUM BICARBONATE [Concomitant]
     Route: 065

REACTIONS (7)
  - ACIDOSIS [None]
  - BLOOD CREATINE PHOSPHOKINASE INCREASED [None]
  - COMA [None]
  - HEPATIC FAILURE [None]
  - PAROSMIA [None]
  - RHABDOMYOLYSIS [None]
  - TACHYCARDIA [None]
